FAERS Safety Report 19097983 (Version 9)
Quarter: 2021Q3

REPORT INFORMATION
  Report Type: Report from Study
  Country: US (occurrence: US)
  Receive Date: 20210406
  Receipt Date: 20210826
  Transmission Date: 20211014
  Serious: No
  Sender: FDA-Public Use
  Company Number: NVSC2021US074418

PATIENT
  Age: 67 Year
  Sex: Female

DRUGS (3)
  1. PIQRAY [Suspect]
     Active Substance: ALPELISIB
     Dosage: 250 MG
     Route: 065
     Dates: start: 20210423
  2. PIQRAY [Suspect]
     Active Substance: ALPELISIB
     Indication: BREAST CANCER
     Dosage: 300 MG, QD, VIA MOUTH
     Route: 048
     Dates: start: 20210325
  3. PIQRAY [Suspect]
     Active Substance: ALPELISIB
     Dosage: 250 MG
     Route: 065

REACTIONS (18)
  - Rash [Unknown]
  - Dehydration [Unknown]
  - Pain in extremity [Unknown]
  - Nausea [Recovering/Resolving]
  - Decreased appetite [Unknown]
  - Pneumonitis [Unknown]
  - Skin disorder [Recovering/Resolving]
  - Taste disorder [Unknown]
  - Diarrhoea [Unknown]
  - Mouth ulceration [Unknown]
  - Hyperglycaemia [Unknown]
  - Impaired healing [Unknown]
  - Cheilitis [Unknown]
  - Pruritus [Recovering/Resolving]
  - Dry skin [Unknown]
  - Tongue ulceration [Unknown]
  - Asthenia [Not Recovered/Not Resolved]
  - Urticaria [Recovering/Resolving]

NARRATIVE: CASE EVENT DATE: 20210325
